FAERS Safety Report 6340922-8 (Version None)
Quarter: 2009Q3

REPORT INFORMATION
  Report Type: 
  Country: None (occurrence: None)
  Receive Date: 20090904
  Receipt Date: 20090824
  Transmission Date: 20100115
  Serious: Yes (Death)
  Sender: FDA-Public Use
  Company Number: US-PFIZER INC-2009215330

PATIENT
  Sex: Male

DRUGS (3)
  1. CISPLATIN [Suspect]
     Indication: MESOTHELIOMA MALIGNANT
  2. PEMETREXED [Suspect]
     Indication: MESOTHELIOMA MALIGNANT
  3. GEMCITABINE [Suspect]
     Indication: MESOTHELIOMA MALIGNANT

REACTIONS (2)
  - DISEASE PROGRESSION [None]
  - MESOTHELIOMA MALIGNANT [None]
